FAERS Safety Report 8669433 (Version 4)
Quarter: 2013Q3

REPORT INFORMATION
  Report Type: Spontaneous
  Country: GR (occurrence: GR)
  Receive Date: 20120718
  Receipt Date: 20130828
  Transmission Date: 20140515
  Serious: Yes (Other)
  Sender: FDA-Public Use
  Company Number: GR-AMGEN-GRCSP2012042824

PATIENT
  Sex: Female

DRUGS (2)
  1. ENBREL [Suspect]
     Indication: PRODUCT USED FOR UNKNOWN INDICATION
     Dosage: 50 MG, UNK
     Route: 065
     Dates: end: 201206
  2. ENBREL [Suspect]
     Dosage: 50 MG, EVERY 10 DAYS
     Route: 065

REACTIONS (4)
  - Tooth disorder [Not Recovered/Not Resolved]
  - Transaminases increased [Recovered/Resolved]
  - Laboratory test abnormal [Unknown]
  - Genital infection [Not Recovered/Not Resolved]
